FAERS Safety Report 8205834-3 (Version None)
Quarter: 2012Q1

REPORT INFORMATION
  Report Type: 
  Country: None (occurrence: None)
  Receive Date: 20120313
  Receipt Date: 20120301
  Transmission Date: 20120608
  Serious: Yes (Other)
  Sender: FDA-Public Use
  Company Number: DE-SANOFI-AVENTIS-2012SA016283

PATIENT
  Sex: Male

DRUGS (4)
  1. DOCETAXEL [Suspect]
     Route: 051
     Dates: start: 20061107, end: 20061107
  2. DOCETAXEL [Suspect]
     Dosage: CYCLE 3, SEQUENCE 1- 74.11 MG/M2CYCLE 4, SEQUENCE-1- 74.42 MG/M2CYCLE 1, SEQUENCE-2-74.24 MG/M2
     Route: 051
     Dates: start: 20061219, end: 20070412
  3. DOCETAXEL [Suspect]
     Indication: NEOPLASM PROSTATE
     Route: 051
     Dates: start: 20061128, end: 20061128
  4. DOCETAXEL [Suspect]
     Route: 051
     Dates: start: 20070503, end: 20070503

REACTIONS (3)
  - HAEMATURIA [None]
  - INFECTION [None]
  - NEUTROPENIC INFECTION [None]
